FAERS Safety Report 13389412 (Version 1)
Quarter: 2017Q1

REPORT INFORMATION
  Report Type: Report from Study
  Country: IT (occurrence: IT)
  Receive Date: 20170330
  Receipt Date: 20170330
  Transmission Date: 20170429
  Serious: Yes (Hospitalization)
  Sender: FDA-Public Use
  Company Number: IT-TEVA-752802ACC

PATIENT
  Age: 43 Year
  Sex: Male

DRUGS (5)
  1. CARBOLITHIUM - 300 MG CAPSULE RIGIDE - TEVA ITALIA S.R.L. [Suspect]
     Active Substance: LITHIUM CARBONATE
     Indication: DRUG ABUSE
     Dosage: 5 DF TOTAL
     Route: 048
  2. ETILTOX - 200 MG COMPRESSE - AFOM DIPENDENZE S.R.L. [Suspect]
     Active Substance: DISULFIRAM
     Indication: DRUG ABUSE
     Dosage: 9 DF TOTAL
     Route: 048
  3. ESCITALOPRAM [Suspect]
     Active Substance: ESCITALOPRAM OXALATE
     Indication: DRUG ABUSE
     Dosage: 270 MG TOTAL
     Route: 048
  4. ETHYL ALCOHOL [Concomitant]
     Active Substance: ALCOHOL
  5. QUETIAPINE. [Suspect]
     Active Substance: QUETIAPINE
     Indication: DRUG ABUSE
     Route: 048

REACTIONS (2)
  - Drug abuse [Unknown]
  - Sopor [Unknown]

NARRATIVE: CASE EVENT DATE: 20161204
